FAERS Safety Report 21672872 (Version 2)
Quarter: 2023Q1

REPORT INFORMATION
  Report Type: Spontaneous
  Country: CN (occurrence: CN)
  Receive Date: 20221202
  Receipt Date: 20230213
  Transmission Date: 20230418
  Serious: Yes (Death, Life-Threatening)
  Sender: FDA-Public Use
  Company Number: CN-JNJFOC-20221161355

PATIENT
  Sex: Female
  Weight: 60 kg

DRUGS (4)
  1. DARZALEX [Suspect]
     Active Substance: DARATUMUMAB
     Indication: Plasma cell myeloma
     Dosage: STRENGTH 400.00 MG / 20.00 ML
     Route: 041
     Dates: start: 20220921, end: 20220928
  2. DARZALEX [Suspect]
     Active Substance: DARATUMUMAB
     Dosage: 100 ML OF 0.9% SODIUM CHLORIDE INJECTION DILUTED
     Route: 041
  3. VELCADE [Suspect]
     Active Substance: BORTEZOMIB
     Indication: Plasma cell myeloma
     Route: 058
     Dates: start: 20220921, end: 20221001
  4. DEXAMETHASONE SODIUM PHOSPHATE [Suspect]
     Active Substance: DEXAMETHASONE SODIUM PHOSPHATE
     Indication: Plasma cell myeloma
     Dosage: 100 ML OF 0.9% SODIUM CHLORIDE INJECTION DILUTED)
     Route: 042
     Dates: start: 20220921, end: 20220928

REACTIONS (2)
  - Plasma cell myeloma [Fatal]
  - White blood cell count decreased [Not Recovered/Not Resolved]

NARRATIVE: CASE EVENT DATE: 20220923
